FAERS Safety Report 8646230 (Version 5)
Quarter: 2012Q4

REPORT INFORMATION
  Report Type: Report from Study
  Country: IT (occurrence: IT)
  Receive Date: 20120702
  Receipt Date: 20120926
  Transmission Date: 20130627
  Serious: Yes (Death, Other)
  Sender: FDA-Public Use
  Company Number: IT-CELGENEUS-083-21880-12061805

PATIENT
  Age: 61 Year
  Sex: Male

DRUGS (3)
  1. REVLIMID [Suspect]
     Indication: 5Q MINUS MDS
     Route: 048
     Dates: start: 20120110
  2. REVLIMID [Suspect]
     Route: 048
     Dates: start: 20120206, end: 20120216
  3. VIDAZA [Suspect]
     Indication: ACUTE MYELOID LEUKEMIA
     Route: 065

REACTIONS (2)
  - Sepsis [Fatal]
  - Acute myeloid leukaemia [Not Recovered/Not Resolved]
